FAERS Safety Report 17157024 (Version 1)
Quarter: 2019Q4

REPORT INFORMATION
  Report Type: Spontaneous
  Country: US (occurrence: US)
  Receive Date: 20191216
  Receipt Date: 20191216
  Transmission Date: 20200122
  Serious: No
  Sender: FDA-Public Use
  Company Number: US-AUROBINDO-AUR-APL-2019-067937

PATIENT
  Age: 25 Year
  Sex: Female

DRUGS (1)
  1. MIRTAZAPINE TABLETS 30 MG [Suspect]
     Active Substance: MIRTAZAPINE
     Indication: PRODUCT USED FOR UNKNOWN INDICATION
     Dosage: UNK, FOR A COUPLE OF MONTHS
     Route: 065

REACTIONS (2)
  - Diarrhoea [Unknown]
  - Abdominal distension [Unknown]
